FAERS Safety Report 5978432-X (Version None)
Quarter: 2008Q4

REPORT INFORMATION
  Report Type: 
  Country: None (occurrence: None)
  Receive Date: 20081126
  Receipt Date: 20081111
  Transmission Date: 20090506
  Serious: Yes (Other)
  Sender: FDA-Public Use
  Company Number: 036609

PATIENT
  Age: 27 Year
  Sex: Female

DRUGS (4)
  1. CLARAVIS [Suspect]
     Dosage: 40 MG, QD, ORAL
     Route: 048
     Dates: start: 20081021, end: 20081103
  2. CLARAVIS [Suspect]
     Dosage: 40 MG, QD, ORAL
     Route: 048
     Dates: start: 20080809
  3. ACCUTANE [Suspect]
     Dosage: 40 MG, QD, ORAL
     Route: 048
     Dates: start: 20080923
  4. ORAL CONTRACEPTIVE NOS (ORAL CONTRACEPTIVES NOS) [Concomitant]

REACTIONS (3)
  - TREATMENT NONCOMPLIANCE [None]
  - UNINTENDED PREGNANCY [None]
  - VOMITING [None]
